FAERS Safety Report 8206880-6 (Version None)
Quarter: 2012Q1

REPORT INFORMATION
  Report Type: 
  Country: None (occurrence: None)
  Receive Date: 20120312
  Receipt Date: 20120222
  Transmission Date: 20120608
  Serious: Yes (Hospitalization, Other)
  Sender: FDA-Public Use
  Company Number: 2012-00288

PATIENT
  Age: 59 Year
  Sex: Female
  Weight: 87.9978 kg

DRUGS (3)
  1. GABAPENTIN [Concomitant]
  2. SIMVASTATIN [Suspect]
     Indication: HYPERCHOLESTEROLAEMIA
     Dosage: 20 MG (20 MG, 1 IN 1 D), PER ORAL
     Route: 048
     Dates: start: 20110101, end: 20111001
  3. LEVOTHYROXINE (TABLETS) [Concomitant]

REACTIONS (3)
  - VISION BLURRED [None]
  - CATARACT [None]
  - CHEST PAIN [None]
